FAERS Safety Report 15000947 (Version 1)
Quarter: 2018Q2

REPORT INFORMATION
  Report Type: Spontaneous
  Country: ZA (occurrence: ZA)
  Receive Date: 20180523
  Receipt Date: 20180523
  Transmission Date: 20180711
  Serious: Yes (Disabling)
  Sender: FDA-Public Use
  Company Number: None

PATIENT
  Age: 44 Year
  Sex: Female
  Weight: 61 kg

DRUGS (2)
  1. ABILIFY [Suspect]
     Active Substance: ARIPIPRAZOLE
     Indication: BIPOLAR I DISORDER
     Dosage: ?          QUANTITY:1 DF DOSAGE FORM;?
     Route: 048
     Dates: start: 20180515, end: 20180522
  2. LAMOTROGINE [Concomitant]
     Active Substance: LAMOTRIGINE

REACTIONS (7)
  - Diplopia [None]
  - Akathisia [None]
  - Hyperhidrosis [None]
  - Respiratory disorder [None]
  - Cough [None]
  - Musculoskeletal stiffness [None]
  - Headache [None]

NARRATIVE: CASE EVENT DATE: 20180522
